FAERS Safety Report 18923728 (Version 2)
Quarter: 2021Q1

REPORT INFORMATION
  Report Type: Spontaneous
  Country: US (occurrence: US)
  Receive Date: 20210222
  Receipt Date: 20210325
  Transmission Date: 20210420
  Serious: Yes (Death, Hospitalization, Other)
  Sender: FDA-Public Use
  Company Number: US-ASTRAZENECA-2021A071497

PATIENT

DRUGS (5)
  1. PANTOPRAZOLE [Suspect]
     Active Substance: PANTOPRAZOLE
     Indication: PRODUCT USED FOR UNKNOWN INDICATION
     Dosage: 30 MG30.0MG UNKNOWN
     Route: 065
     Dates: start: 20181026, end: 2019
  2. NEXIUM 24HR [Suspect]
     Active Substance: ESOMEPRAZOLE MAGNESIUM
     Indication: GASTROOESOPHAGEAL REFLUX DISEASE
     Dosage: UNK
     Route: 048
     Dates: start: 2015
  3. NEXIUM 24HR [Suspect]
     Active Substance: ESOMEPRAZOLE MAGNESIUM
     Indication: PRODUCT USED FOR UNKNOWN INDICATION
     Dosage: UNK
     Route: 048
     Dates: start: 2015
  4. PANTOPRAZOLE [Suspect]
     Active Substance: PANTOPRAZOLE
     Indication: GASTROOESOPHAGEAL REFLUX DISEASE
     Dosage: 30 MG30.0MG UNKNOWN
     Route: 065
     Dates: start: 20181026, end: 2019
  5. PRILOSEC [Suspect]
     Active Substance: OMEPRAZOLE MAGNESIUM
     Indication: GASTROOESOPHAGEAL REFLUX DISEASE
     Dosage: UNK
     Route: 048
     Dates: start: 2015, end: 2019

REACTIONS (17)
  - Ureteric obstruction [Unknown]
  - Oesophageal carcinoma [Unknown]
  - Adenocarcinoma gastric [Fatal]
  - Hyperchlorhydria [Unknown]
  - Oesophageal mass [Unknown]
  - Haemodialysis [Unknown]
  - Proteinuria [Unknown]
  - Urinary tract obstruction [Unknown]
  - Adenocarcinoma [Unknown]
  - Renal failure [Unknown]
  - Gastric cancer [Unknown]
  - Hydronephrosis [Unknown]
  - Rebound effect [Unknown]
  - Nephrostomy [Unknown]
  - Acute kidney injury [Fatal]
  - Renal impairment [Unknown]
  - Nephrogenic anaemia [Unknown]
